FAERS Safety Report 8891329 (Version 1)
Quarter: 2012Q4

REPORT INFORMATION
  Report Type: Spontaneous
  Country: US (occurrence: None)
  Receive Date: 20121105
  Receipt Date: 20121105
  Transmission Date: 20130627
  Serious: No
  Sender: FDA-Public Use
  Company Number: None

PATIENT
  Age: 56 Year
  Sex: Female
  Weight: 82.56 kg

DRUGS (2)
  1. CLONIDINE [Suspect]
     Indication: BIPOLAR DISORDER
  2. ABILIFY [Suspect]

REACTIONS (2)
  - Lethargy [None]
  - Hypersensitivity [None]
